FAERS Safety Report 25094640 (Version 1)
Quarter: 2025Q1

REPORT INFORMATION
  Report Type: Spontaneous
  Country: US (occurrence: None)
  Receive Date: 20250318
  Receipt Date: 20250318
  Transmission Date: 20250408
  Serious: Yes (Disabling)
  Sender: FDA-CTU
  Company Number: None

PATIENT
  Age: 35 Year
  Weight: 92.25 kg

DRUGS (7)
  1. SERTRALINE [Suspect]
     Active Substance: SERTRALINE HYDROCHLORIDE
     Indication: Major depression
     Dosage: FREQUENCY : DAILY;?
     Route: 048
     Dates: start: 20240814, end: 20250224
  2. CLONIDINE [Concomitant]
     Active Substance: CLONIDINE
  3. suobxone [Concomitant]
  4. GABAPENTIN [Concomitant]
     Active Substance: GABAPENTIN
  5. PRAZOSIN [Concomitant]
     Active Substance: PRAZOSIN
  6. ADDERALL [Concomitant]
     Active Substance: AMPHETAMINE ASPARTATE\AMPHETAMINE SULFATE\DEXTROAMPHETAMINE SACCHARATE\DEXTROAMPHETAMINE SULFATE
  7. ADVIL [Concomitant]
     Active Substance: IBUPROFEN

REACTIONS (11)
  - Influenza like illness [None]
  - Drug withdrawal syndrome [None]
  - Vomiting [None]
  - Headache [None]
  - Insomnia [None]
  - Panic attack [None]
  - Paraesthesia [None]
  - Dizziness [None]
  - Vertigo [None]
  - Social problem [None]
  - Therapy change [None]

NARRATIVE: CASE EVENT DATE: 20250225
